FAERS Safety Report 10141088 (Version 2)
Quarter: 2015Q1

REPORT INFORMATION
  Report Type: Other
  Country: US (occurrence: US)
  Receive Date: 20140429
  Receipt Date: 20150204
  Transmission Date: 20150720
  Serious: Yes (Hospitalization, Other)
  Sender: FDA-Public Use
  Company Number: US-GSKPPD-2014GSK040898

PATIENT
  Age: 73 Year
  Sex: Male

DRUGS (7)
  1. COREG [Concomitant]
     Active Substance: CARVEDILOL
  2. LASIX [Concomitant]
     Active Substance: FUROSEMIDE
  3. ASPIRIN. [Concomitant]
     Active Substance: ASPIRIN
  4. AVANDIA [Suspect]
     Active Substance: ROSIGLITAZONE MALEATE
     Indication: DIABETES MELLITUS
     Dosage: DATES OF AVANDIA USE COULD NOT BE CONFIRMED IN RECORDS REVIEWED.
     Route: 048
  5. PLAVIX [Concomitant]
     Active Substance: CLOPIDOGREL BISULFATE
  6. AVAPRO [Concomitant]
     Active Substance: IRBESARTAN
  7. NITROGLYCERIN. [Concomitant]
     Active Substance: NITROGLYCERIN

REACTIONS (2)
  - Arteriosclerosis [Recovered/Resolved]
  - Myocardial infarction [Unknown]

NARRATIVE: CASE EVENT DATE: 20050301
